FAERS Safety Report 4511205-3 (Version None)
Quarter: 2004Q4

REPORT INFORMATION
  Report Type: 
  Country: None (occurrence: None)
  Receive Date: 20041122
  Receipt Date: 20041122
  Transmission Date: 20050328
  Serious: No
  Sender: FDA-Public Use
  Company Number: None

PATIENT
  Age: 42 Year
  Sex: Female
  Weight: 85.7298 kg

DRUGS (3)
  1. ADVAIR DISKUS 250/50 [Suspect]
     Indication: ASTHMA
     Dosage: 2X'S A DAY  INHALED RESPIRATORY
     Route: 055
     Dates: start: 20040901, end: 20041107
  2. ADVAIR DISKUS 250/50 [Suspect]
     Indication: MULTIPLE ALLERGIES
     Dosage: 2X'S A DAY  INHALED RESPIRATORY
     Route: 055
     Dates: start: 20040901, end: 20041107
  3. NASACORT AQ [Suspect]
     Dosage: 1X A DAY  2 SPRAYS NASAL
     Route: 045

REACTIONS (5)
  - FUNGAL INFECTION [None]
  - HOARSENESS [None]
  - MUCOSAL DRYNESS [None]
  - ORAL PAIN [None]
  - SINUS DISORDER [None]
